FAERS Safety Report 25457514 (Version 3)
Quarter: 2025Q3

REPORT INFORMATION
  Report Type: Report from Study
  Country: EU (occurrence: EU)
  Receive Date: 20250619
  Receipt Date: 20250917
  Transmission Date: 20251021
  Serious: Yes (Other)
  Sender: ALEXION PHARMACEUTICALS
  Company Number: EU-ASTRAZENECA-202505EEA029261FR

PATIENT
  Sex: Male
  Weight: 86 kg

DRUGS (1)
  1. DURVALUMAB [Suspect]
     Active Substance: DURVALUMAB
     Indication: Non-small cell lung cancer
     Dosage: 1500 MILLIGRAM, Q4W
     Route: 065
     Dates: start: 20250318, end: 20250902

REACTIONS (5)
  - Neuropathy peripheral [Unknown]
  - Asthenia [Unknown]
  - Epistaxis [Unknown]
  - Thyroxine abnormal [Recovered/Resolved]
  - Eastern Cooperative Oncology Group performance status worsened [Unknown]
